FAERS Safety Report 19737544 (Version 1)
Quarter: 2021Q3

REPORT INFORMATION
  Report Type: Spontaneous
  Country: US (occurrence: US)
  Receive Date: 20210820
  Receipt Date: 20210820
  Transmission Date: 20211014
  Serious: No
  Sender: FDA-Public Use
  Company Number: None

PATIENT
  Sex: Female

DRUGS (1)
  1. VITRAKVI [Suspect]
     Active Substance: LAROTRECTINIB
     Indication: RENAL CANCER
     Route: 048
     Dates: start: 202103, end: 20210515

REACTIONS (2)
  - Hepatotoxicity [None]
  - Therapy cessation [None]
